FAERS Safety Report 8765661 (Version 2)
Quarter: 2012Q4

REPORT INFORMATION
  Report Type: 
  Country: NL (occurrence: NL)
  Receive Date: 20120904
  Receipt Date: 20120926
  Transmission Date: 20130627
  Serious: Yes (Death)
  Sender: FDA-Public Use
  Company Number: PHHY2012NL076180

PATIENT
  Age: 68 Year
  Sex: Male
  Weight: 70 kg

DRUGS (2)
  1. ZOMETA [Suspect]
     Dosage: 4 mg per 100ml once every 28 days
     Route: 042
  2. ZOMETA [Suspect]
     Dosage: 4 mg per 100ml once every 28 days
     Route: 042
     Dates: start: 20120712

REACTIONS (2)
  - Euthanasia [Fatal]
  - Metastatic renal cell carcinoma [Fatal]
